FAERS Safety Report 9403786 (Version 1)
Quarter: 2013Q3

REPORT INFORMATION
  Report Type: Spontaneous
  Country: US (occurrence: None)
  Receive Date: 20130716
  Receipt Date: 20130716
  Transmission Date: 20140515
  Serious: Yes (Life-Threatening, Other)
  Sender: FDA-Public Use
  Company Number: None

PATIENT
  Sex: Male

DRUGS (3)
  1. CLOZAPINE [Suspect]
     Route: 048
  2. METFORMIN [Concomitant]
  3. TRICORE [Concomitant]

REACTIONS (7)
  - Hallucination, auditory [None]
  - Paranoia [None]
  - Disorientation [None]
  - Suspiciousness [None]
  - Acute psychosis [None]
  - Abnormal behaviour [None]
  - Product substitution issue [None]
